FAERS Safety Report 23558680 (Version 1)
Quarter: 2024Q1

REPORT INFORMATION
  Report Type: Spontaneous
  Country: US (occurrence: US)
  Receive Date: 20240223
  Receipt Date: 20240223
  Transmission Date: 20240409
  Serious: Yes (Other)
  Sender: FDA-Public Use
  Company Number: US-BAYER-2024A026063

PATIENT
  Age: 74 Year
  Sex: Male

DRUGS (2)
  1. ACETAMINOPHEN\GUAIFENESIN [Suspect]
     Active Substance: ACETAMINOPHEN\GUAIFENESIN
     Indication: Hypersensitivity
     Dosage: 1 DF
     Route: 048
     Dates: start: 20240215, end: 20240215
  2. ACETAMINOPHEN\GUAIFENESIN [Suspect]
     Active Substance: ACETAMINOPHEN\GUAIFENESIN
     Indication: Nasopharyngitis

REACTIONS (1)
  - Foreign body in throat [Recovered/Resolved]

NARRATIVE: CASE EVENT DATE: 20240215
